FAERS Safety Report 26216980 (Version 1)
Quarter: 2025Q4

REPORT INFORMATION
  Report Type: Spontaneous
  Country: US (occurrence: US)
  Receive Date: 20251231
  Receipt Date: 20251231
  Transmission Date: 20260119
  Serious: No
  Sender: ABBVIE
  Company Number: US-ABBVIE-6610657

PATIENT
  Age: 24 Year
  Sex: Female
  Weight: 111.13 kg

DRUGS (2)
  1. LILETTA [Suspect]
     Active Substance: LEVONORGESTREL
     Indication: Contraception
     Dosage: TIME INTERVAL: AS NECESSARY
     Route: 015
     Dates: start: 20251022, end: 20251229
  2. METFORMIN [Concomitant]
     Active Substance: METFORMIN HYDROCHLORIDE
     Indication: Polycystic ovarian syndrome

REACTIONS (1)
  - Device expulsion [Recovered/Resolved]

NARRATIVE: CASE EVENT DATE: 20251229
